FAERS Safety Report 11005103 (Version 1)
Quarter: 2015Q2

REPORT INFORMATION
  Report Type: Spontaneous
  Country: US (occurrence: US)
  Receive Date: 20150409
  Receipt Date: 20150409
  Transmission Date: 20150821
  Serious: No
  Sender: FDA-Public Use
  Company Number: US-PFIZER INC-2015118585

PATIENT
  Age: 33 Year
  Sex: Male
  Weight: 96 kg

DRUGS (2)
  1. NOXYFUEL [Concomitant]
  2. FLUCONAZOLE. [Suspect]
     Active Substance: FLUCONAZOLE
     Dosage: UNK

REACTIONS (5)
  - Influenza [Unknown]
  - Pyrexia [Unknown]
  - Viral infection [Unknown]
  - Cardiac disorder [Unknown]
  - Malaise [Unknown]
